FAERS Safety Report 17563988 (Version 4)
Quarter: 2020Q3

REPORT INFORMATION
  Report Type: Other
  Country: US (occurrence: US)
  Receive Date: 20200320
  Receipt Date: 20200818
  Transmission Date: 20201102
  Serious: Yes (Other)
  Sender: FDA-Public Use
  Company Number: US-ROCHE-2566625

PATIENT
  Age: 55 Year
  Sex: Female
  Weight: 65.83 kg

DRUGS (13)
  1. OCREVUS [Suspect]
     Active Substance: OCRELIZUMAB
     Indication: PRIMARY PROGRESSIVE MULTIPLE SCLEROSIS
     Dosage: GIVEN 2 WEEKS APART; THERAPY ONGOING UNKNOWN
     Route: 042
     Dates: start: 20190522
  2. OCREVUS [Suspect]
     Active Substance: OCRELIZUMAB
     Indication: SECONDARY PROGRESSIVE MULTIPLE SCLEROSIS
  3. DALFAMPRIDINE. [Suspect]
     Active Substance: DALFAMPRIDINE
     Indication: MULTIPLE SCLEROSIS
     Dosage: THERAPY ONGOING YES
     Route: 048
  4. COPAXONE [Suspect]
     Active Substance: GLATIRAMER ACETATE
     Indication: PRODUCT USED FOR UNKNOWN INDICATION
     Dosage: THERAPY ONGOING NO
     Route: 065
     Dates: start: 2020
  5. TIZANIDINE. [Concomitant]
     Active Substance: TIZANIDINE
     Indication: MUSCLE SPASMS
     Dosage: THERAPY ONGOING YES
     Route: 048
  6. RITALIN [Suspect]
     Active Substance: METHYLPHENIDATE HYDROCHLORIDE
     Indication: PRODUCT USED FOR UNKNOWN INDICATION
     Dosage: 2 TABLETS IN AM AND 1 TABLET AFTERNOON ; THERAPY ONGOING: YES
     Route: 048
     Dates: start: 2020
  7. OCREVUS [Suspect]
     Active Substance: OCRELIZUMAB
     Indication: MULTIPLE SCLEROSIS
     Dosage: THERAPY ONGOING NO
     Route: 065
     Dates: start: 201905
  8. BOTOX [Concomitant]
     Active Substance: ONABOTULINUMTOXINA
     Dates: start: 2019
  9. LAMOTRIGINE. [Concomitant]
     Active Substance: LAMOTRIGINE
     Dosage: THERAPY ONGOING YES ; 1 AT AM AND 1 AT NIGHT
     Route: 048
  10. MEDICAL MARIJUANA [Concomitant]
     Active Substance: CANNABIS SATIVA SUBSP. INDICA TOP
     Dosage: THERAPY ONGOING YES ; AS NEEDED
     Route: 048
     Dates: start: 2018
  11. RITUXAN [Suspect]
     Active Substance: RITUXIMAB
     Indication: MULTIPLE SCLEROSIS
     Route: 065
  12. DULOXETINE. [Concomitant]
     Active Substance: DULOXETINE
     Indication: DEPRESSION
     Dosage: THERAPY ONGOING YES ; 1 CAPSULE IN AM
     Route: 048
  13. DULOXETINE. [Concomitant]
     Active Substance: DULOXETINE
     Dosage: THERAPY ONGOING YES ; 1 AT NIGHT
     Route: 048

REACTIONS (6)
  - Amnesia [Unknown]
  - Intentional product use issue [Unknown]
  - Urinary tract infection [Unknown]
  - Off label use [Unknown]
  - Urinary tract infection [Unknown]
  - Urticaria [Not Recovered/Not Resolved]

NARRATIVE: CASE EVENT DATE: 202003
